FAERS Safety Report 5943146-9 (Version None)
Quarter: 2008Q4

REPORT INFORMATION
  Report Type: 
  Country: None (occurrence: None)
  Receive Date: 20081106
  Receipt Date: 20081029
  Transmission Date: 20090506
  Serious: Yes (Other)
  Sender: FDA-Public Use
  Company Number: US-ABBOTT-08P-163-0484557-00

PATIENT
  Sex: Female
  Weight: 74.91 kg

DRUGS (3)
  1. LUPRON DEPOT [Suspect]
     Indication: UTERINE LEIOMYOMA
     Route: 050
     Dates: start: 20000101
  2. ACETYLSALICYLIC ACID SRT [Suspect]
     Indication: ESSENTIAL HYPERTENSION
  3. CALCIUM CHANNEL BLOCKERS [Suspect]
     Indication: ESSENTIAL HYPERTENSION

REACTIONS (8)
  - ANAEMIA [None]
  - ESSENTIAL HYPERTENSION [None]
  - HAEMORRHAGE [None]
  - HEADACHE [None]
  - MALIGNANT HYPERTENSION [None]
  - MENORRHAGIA [None]
  - RENAL DISORDER [None]
  - RENAL FAILURE [None]
